FAERS Safety Report 18452300 (Version 1)
Quarter: 2020Q4

REPORT INFORMATION
  Report Type: Spontaneous
  Country: US (occurrence: US)
  Receive Date: 20201102
  Receipt Date: 20201102
  Transmission Date: 20210114
  Serious: Yes (Other)
  Sender: FDA-Public Use
  Company Number: US-ACCORD-169830

PATIENT
  Age: 39 Year
  Sex: Female

DRUGS (1)
  1. ESCITALOPRAM ACCORD [Suspect]
     Active Substance: ESCITALOPRAM OXALATE
     Indication: PRODUCT USED FOR UNKNOWN INDICATION
     Dosage: STRENGTH 15 MG

REACTIONS (5)
  - Suicidal ideation [Unknown]
  - Anxiety [Unknown]
  - Disorientation [Unknown]
  - Product substitution issue [Unknown]
  - Panic attack [Unknown]
